FAERS Safety Report 16936312 (Version 1)
Quarter: 2019Q4

REPORT INFORMATION
  Report Type: Spontaneous
  Country: US (occurrence: US)
  Receive Date: 20191018
  Receipt Date: 20191018
  Transmission Date: 20200122
  Serious: No
  Sender: FDA-Public Use
  Company Number: US-BAUSCH-BL-2019-026424

PATIENT
  Sex: Female
  Weight: 95.34 kg

DRUGS (8)
  1. ARMOUR THYROID [Concomitant]
     Active Substance: THYROID, PORCINE
     Indication: PRODUCT USED FOR UNKNOWN INDICATION
     Route: 048
  2. ACYCLOVIR. [Concomitant]
     Active Substance: ACYCLOVIR
     Indication: PRODUCT USED FOR UNKNOWN INDICATION
     Route: 048
  3. LISINOPRIL. [Concomitant]
     Active Substance: LISINOPRIL
     Indication: PRODUCT USED FOR UNKNOWN INDICATION
     Route: 048
  4. HYDROCODONE [Concomitant]
     Active Substance: HYDROCODONE
     Indication: PRODUCT USED FOR UNKNOWN INDICATION
     Dosage: AS NEEDED
     Route: 048
  5. ALREX [Suspect]
     Active Substance: LOTEPREDNOL ETABONATE
     Indication: OPHTHALMIC HERPES ZOSTER
     Dosage: STARTED SIX YEARS AGO AS DIRECTED
     Route: 047
     Dates: start: 2013
  6. MELOXICAM. [Concomitant]
     Active Substance: MELOXICAM
     Indication: PRODUCT USED FOR UNKNOWN INDICATION
     Route: 048
  7. FISH OIL [Concomitant]
     Active Substance: FISH OIL
     Indication: PRODUCT USED FOR UNKNOWN INDICATION
     Route: 048
  8. ALREX [Suspect]
     Active Substance: LOTEPREDNOL ETABONATE
     Indication: SEASONAL ALLERGY
     Dosage: WOULD USE OFF AND ON TO TREAT THE SYMPTOMS
     Route: 047
     Dates: end: 2018

REACTIONS (6)
  - Eye swelling [Recovering/Resolving]
  - Reaction to preservatives [Unknown]
  - Eye pruritus [Recovering/Resolving]
  - Ocular hyperaemia [Recovering/Resolving]
  - Seasonal allergy [Recovering/Resolving]
  - Condition aggravated [Recovering/Resolving]
